FAERS Safety Report 5615019-2 (Version None)
Quarter: 2008Q1

REPORT INFORMATION
  Report Type: 
  Country: None (occurrence: None)
  Receive Date: 20080206
  Receipt Date: 20080129
  Transmission Date: 20080703
  Serious: Yes (Other)
  Sender: FDA-Public Use
  Company Number: FRWYE327218SEP07

PATIENT
  Sex: Female

DRUGS (6)
  1. EFFEXOR [Suspect]
     Indication: PSYCHOTIC DISORDER
     Dosage: OVERDOSE AMOUNT WAS 1500 MG TOTAL DAILY
     Route: 048
     Dates: start: 20070801, end: 20070915
  2. EFFEXOR [Suspect]
     Indication: ANXIETY
     Dosage: OVERDOSE AMOUNT WAS 1500 MG TOTAL DAILY
     Route: 048
     Dates: start: 20070101
  3. EFFEXOR [Suspect]
     Dosage: OVERDOSE AMOUNT WAS 2000 MG TOTAL DAILY
     Route: 048
  4. BACLOFEN [Concomitant]
     Indication: HEREDITARY SPASTIC PARAPLEGIA
     Dosage: UNKNOWN
  5. ABILIFY [Concomitant]
     Indication: PSYCHOTIC DISORDER
     Dosage: UNKNOWN
     Dates: start: 20060101
  6. ABILIFY [Concomitant]
     Indication: ANXIETY

REACTIONS (8)
  - ANXIETY [None]
  - CONVULSION [None]
  - DRUG ABUSE [None]
  - DRUG WITHDRAWAL SYNDROME [None]
  - GAIT DISTURBANCE [None]
  - INTENTIONAL OVERDOSE [None]
  - MOBILITY DECREASED [None]
  - VERTIGO [None]
